FAERS Safety Report 18256915 (Version 1)
Quarter: 2020Q3

REPORT INFORMATION
  Report Type: Spontaneous
  Country: US (occurrence: US)
  Receive Date: 20200501
  Receipt Date: 20200501
  Transmission Date: 20201103
  Serious: No
  Sender: FDA-Public Use
  Company Number: None

PATIENT
  Sex: Female

DRUGS (3)
  1. LOPINAVIR [Suspect]
     Active Substance: LOPINAVIR
  2. INTERFERON [Suspect]
     Active Substance: INTERFERON
     Indication: COVID-19
     Dosage: ?          OTHER ROUTE:AEROSOLIZED INHALATION?
  3. RITONAVIR. [Suspect]
     Active Substance: RITONAVIR

REACTIONS (2)
  - Exposure during pregnancy [None]
  - Product use in unapproved indication [None]
